FAERS Safety Report 19983195 (Version 1)
Quarter: 2021Q4

REPORT INFORMATION
  Report Type: Report from Study
  Country: US (occurrence: US)
  Receive Date: 20211021
  Receipt Date: 20211021
  Transmission Date: 20220303
  Serious: Yes (Death, Hospitalization)
  Sender: FDA-Public Use
  Company Number: US-TEVA-2021-US-1966667

PATIENT
  Age: 8 Decade
  Sex: Male

DRUGS (4)
  1. METHYLPREDNISOLONE [Suspect]
     Active Substance: METHYLPREDNISOLONE
     Indication: Immune-mediated myocarditis
     Route: 042
  2. METHYLPREDNISOLONE [Suspect]
     Active Substance: METHYLPREDNISOLONE
     Indication: Immune-mediated myocarditis
     Dosage: 180 MILLIGRAM DAILY;
     Route: 065
  3. PREDNISONE [Suspect]
     Active Substance: PREDNISONE
     Indication: Immune-mediated myocarditis
     Dosage: 80 MILLIGRAM DAILY;
     Route: 048
  4. PEMBROLIZUMAB [Suspect]
     Active Substance: PEMBROLIZUMAB
     Indication: Non-small cell lung cancer stage IV
     Route: 065

REACTIONS (5)
  - Immune-mediated myocarditis [Fatal]
  - Cardiac arrest [Fatal]
  - Cardiac failure [Fatal]
  - Ventricular tachycardia [Fatal]
  - Drug ineffective [Fatal]
